FAERS Safety Report 14115773 (Version 2)
Quarter: 2017Q4

REPORT INFORMATION
  Report Type: Spontaneous
  Country: ES (occurrence: ES)
  Receive Date: 20171023
  Receipt Date: 20171031
  Transmission Date: 20180321
  Serious: Yes (Death, Other)
  Sender: FDA-Public Use
  Company Number: ES-BAYER-2017-202204

PATIENT
  Age: 82 Year
  Sex: Female
  Weight: 68 kg

DRUGS (1)
  1. ULTRAVIST [Suspect]
     Active Substance: IOPROMIDE
     Indication: CONTRAST MEDIA REACTION
     Dosage: UNK
     Route: 042
     Dates: start: 20170929, end: 20170929

REACTIONS (4)
  - Hypovolaemic shock [Fatal]
  - Clonic convulsion [None]
  - Contrast media allergy [None]
  - Depressed level of consciousness [None]

NARRATIVE: CASE EVENT DATE: 20170929
